FAERS Safety Report 17442253 (Version 1)
Quarter: 2020Q1

REPORT INFORMATION
  Report Type: Report from Study
  Country: US (occurrence: US)
  Receive Date: 20200220
  Receipt Date: 20200220
  Transmission Date: 20200409
  Serious: Yes (Hospitalization)
  Sender: FDA-Public Use
  Company Number: US-ACTELION-A-US2016-130119

PATIENT
  Sex: Female
  Weight: 47.62 kg

DRUGS (14)
  1. UPTRAVI [Suspect]
     Active Substance: SELEXIPAG
     Dosage: 1000 MCG, BID
     Route: 048
  2. UPTRAVI [Suspect]
     Active Substance: SELEXIPAG
     Dosage: 1200 MCG, BID
     Route: 048
  3. DILTIAZEM. [Concomitant]
     Active Substance: DILTIAZEM
  4. UPTRAVI [Suspect]
     Active Substance: SELEXIPAG
     Dosage: 1400 MCG, BID
     Route: 048
  5. ADEMPAS [Suspect]
     Active Substance: RIOCIGUAT
     Indication: PRODUCT USED FOR UNKNOWN INDICATION
     Route: 065
  6. UPTRAVI [Suspect]
     Active Substance: SELEXIPAG
     Dosage: 600 MCG, BID
     Route: 048
     Dates: start: 20160229
  7. UPTRAVI [Suspect]
     Active Substance: SELEXIPAG
     Dosage: 800 MCG, BID
     Route: 048
  8. ADCIRCA [Concomitant]
     Active Substance: TADALAFIL
  9. TREPROSTINIL DIOLAMIN [Concomitant]
     Active Substance: TREPROSTINIL DIOLAMINE
  10. OPSUMIT [Suspect]
     Active Substance: MACITENTAN
     Dosage: 10 MG, QD
     Route: 048
  11. UPTRAVI [Suspect]
     Active Substance: SELEXIPAG
     Dosage: 1600 MCG, BID
     Route: 048
  12. OPSUMIT [Suspect]
     Active Substance: MACITENTAN
     Dosage: 10 MG, QD
     Route: 048
  13. OPSUMIT [Suspect]
     Active Substance: MACITENTAN
     Indication: PULMONARY ARTERIAL HYPERTENSION
     Dosage: 10 MG, QD
     Route: 048
     Dates: start: 20150128
  14. UPTRAVI [Suspect]
     Active Substance: SELEXIPAG
     Indication: PULMONARY ARTERIAL HYPERTENSION
     Dosage: 1200 MCG, BID
     Route: 048
     Dates: start: 20160229

REACTIONS (27)
  - Seasonal allergy [Unknown]
  - Feeling abnormal [Unknown]
  - Toothache [Unknown]
  - Nausea [Unknown]
  - Fatigue [Unknown]
  - Rhinorrhoea [Unknown]
  - Malaise [Unknown]
  - Drug intolerance [Unknown]
  - Arthralgia [Unknown]
  - Back pain [Unknown]
  - Diarrhoea [Recovered/Resolved]
  - Upper respiratory tract infection [Unknown]
  - Sleep disorder [Unknown]
  - Weight decreased [Unknown]
  - Neck pain [Unknown]
  - Abdominal discomfort [Recovered/Resolved]
  - Cervical vertebral fracture [Unknown]
  - Musculoskeletal pain [Unknown]
  - Sinusitis [Unknown]
  - Myalgia [Unknown]
  - Muscle spasms [Unknown]
  - Sneezing [Unknown]
  - Cough [Not Recovered/Not Resolved]
  - Pain [Unknown]
  - Fall [Unknown]
  - Oral surgery [Unknown]
  - Hypotension [Unknown]
